FAERS Safety Report 5541752-7 (Version None)
Quarter: 2007Q4

REPORT INFORMATION
  Report Type: 
  Country: None (occurrence: None)
  Receive Date: 20071210
  Receipt Date: 20071129
  Transmission Date: 20080405
  Serious: Yes (Hospitalization)
  Sender: FDA-Public Use
  Company Number: A0680883A

PATIENT
  Age: 60 Year
  Sex: Female

DRUGS (13)
  1. AVANDIA [Suspect]
     Dosage: 8MG PER DAY
     Route: 048
     Dates: start: 20040101, end: 20070730
  2. GLUCOPHAGE [Concomitant]
  3. SYNTHROID [Concomitant]
  4. PRILOSEC [Concomitant]
  5. ALPRAZOLAM [Concomitant]
     Dosage: .5MG PER DAY
     Route: 048
  6. AMARYL [Concomitant]
     Dosage: 2MG PER DAY
     Route: 048
  7. ENTERIC ASPIRIN [Concomitant]
     Dosage: 81MG PER DAY
     Route: 048
  8. DIOVAN HCT [Concomitant]
     Route: 048
  9. DOXEPIN HYDROCHLORIDE [Concomitant]
     Dosage: 50MG AT NIGHT
     Route: 048
  10. FLUOXETINE HYDROCHLORIDE [Concomitant]
     Dosage: 20MG PER DAY
     Route: 048
  11. POTASSIUM CHLORIDE [Concomitant]
     Dosage: 20MEQ PER DAY
     Route: 048
  12. PREMPRO [Concomitant]
     Route: 048
  13. VYTORIN [Concomitant]
     Route: 048

REACTIONS (11)
  - CAROTID ARTERIOSCLEROSIS [None]
  - CORONARY ARTERY DISEASE [None]
  - DUODENAL ULCER [None]
  - DYSPNOEA EXERTIONAL [None]
  - FATIGUE [None]
  - JOINT RANGE OF MOTION DECREASED [None]
  - LEFT VENTRICULAR HYPERTROPHY [None]
  - MELAENA [None]
  - MUSCLE TIGHTNESS [None]
  - MYOCARDIAL INFARCTION [None]
  - PEPTIC ULCER [None]
